FAERS Safety Report 25776360 (Version 1)
Quarter: 2025Q3

REPORT INFORMATION
  Report Type: Spontaneous
  Country: US (occurrence: US)
  Receive Date: 20250909
  Receipt Date: 20250909
  Transmission Date: 20251020
  Serious: No
  Sender: DOMPE FARMACEUTICI
  Company Number: US-FARMAPROD-202408-3022

PATIENT
  Sex: Female

DRUGS (17)
  1. OXERVATE [Suspect]
     Active Substance: CENEGERMIN-BKBJ
     Indication: Neurotrophic keratopathy
     Route: 047
     Dates: start: 20240729
  2. IYUZEH [Concomitant]
     Active Substance: LATANOPROST
  3. PRED FORTE [Concomitant]
     Active Substance: PREDNISOLONE ACETATE
  4. REFRESH CELLUVISC [Concomitant]
     Active Substance: CARBOXYMETHYLCELLULOSE SODIUM
  5. ACYCLOVIR [Concomitant]
     Active Substance: ACYCLOVIR
  6. ASPIRIN [Concomitant]
     Active Substance: ASPIRIN
  7. COENZYME Q-10 [Concomitant]
  8. CALTRATE 600+D PLUS [Concomitant]
  9. MULTIVITAMIN 50 PLUS [Concomitant]
  10. PRAVASTATIN SODIUM [Concomitant]
     Active Substance: PRAVASTATIN SODIUM
  11. ESTRADIOL [Concomitant]
     Active Substance: ESTRADIOL
  12. MELOXICAM [Concomitant]
     Active Substance: MELOXICAM
  13. LEVOTHYROXINE SODIUM [Concomitant]
     Active Substance: LEVOTHYROXINE SODIUM
  14. ERYTHROMYCIN [Concomitant]
     Active Substance: ERYTHROMYCIN
  15. MOXIFLOXACIN [Concomitant]
     Active Substance: MOXIFLOXACIN
  16. LATANOPROST [Concomitant]
     Active Substance: LATANOPROST
  17. ALPHAGAN P [Concomitant]
     Active Substance: BRIMONIDINE TARTRATE

REACTIONS (4)
  - Eye pain [Unknown]
  - Photophobia [Unknown]
  - Rhinorrhoea [Unknown]
  - Eyelid pain [Unknown]
